FAERS Safety Report 4305796-5 (Version None)
Quarter: 2004Q1

REPORT INFORMATION
  Report Type: 
  Country: None (occurrence: None)
  Receive Date: 20040226
  Receipt Date: 20040226
  Transmission Date: 20041129
  Serious: Yes (Hospitalization)
  Sender: FDA-Public Use
  Company Number: None

PATIENT
  Age: 46 Year
  Sex: Male
  Weight: 92.3 kg

DRUGS (8)
  1. TARCEVA [Suspect]
     Indication: GLIOBLASTOMA MULTIFORME
     Dosage: 150 MG PO QD
     Route: 048
     Dates: start: 20040119, end: 20040224
  2. COLACE [Concomitant]
  3. KYTRIL [Concomitant]
  4. PEPCID [Concomitant]
  5. DECADRON [Concomitant]
  6. BENADRYL [Concomitant]
  7. KEPPRA [Concomitant]
  8. TEMODAR [Suspect]
     Indication: GLIOBLASTOMA MULTIFORME
     Dosage: PO QD 161.25 MG
     Dates: start: 20040119, end: 20040224

REACTIONS (1)
  - POSTOPERATIVE INFECTION [None]
